FAERS Safety Report 9285919 (Version 1)
Quarter: 2013Q2

REPORT INFORMATION
  Report Type: Spontaneous
  Country: GB (occurrence: None)
  Receive Date: 20130507
  Receipt Date: 20130507
  Transmission Date: 20140414
  Serious: Yes (Other)
  Sender: FDA-Public Use
  Company Number: 2013AP004800

PATIENT
  Age: 80 Year
  Sex: Female

DRUGS (3)
  1. ALENDRONATE (ALENDRONATE SODIUM) [Suspect]
  2. HYDROXOCOBALAMIN (HYDROXOCOBALAMIN) [Concomitant]
  3. NEO-CYTAMEN (HYDROXOCOBALAMIN) [Concomitant]

REACTIONS (2)
  - Cystitis [None]
  - Pollakiuria [None]
